FAERS Safety Report 10859882 (Version 1)
Quarter: 2015Q1

REPORT INFORMATION
  Report Type: Spontaneous
  Country: US (occurrence: US)
  Receive Date: 20150223
  Receipt Date: 20150223
  Transmission Date: 20150721
  Serious: Yes (Other)
  Sender: FDA-Public Use
  Company Number: US-CELGENEUS-163-21880-14073856

PATIENT
  Age: 58 Year
  Sex: Female

DRUGS (1)
  1. REVLIMID [Suspect]
     Active Substance: LENALIDOMIDE
     Indication: PARAPROTEINAEMIA
     Dosage: 25 MILLIGRAM
     Route: 048
     Dates: start: 20140716

REACTIONS (6)
  - Rash [Recovering/Resolving]
  - Abdominal pain upper [Unknown]
  - Diarrhoea [Unknown]
  - Stomatitis [Recovering/Resolving]
  - Pyrexia [Not Recovered/Not Resolved]
  - Pruritus generalised [Not Recovered/Not Resolved]

NARRATIVE: CASE EVENT DATE: 201407
